FAERS Safety Report 5728145-4 (Version None)
Quarter: 2008Q2

REPORT INFORMATION
  Report Type: 
  Country: None (occurrence: None)
  Receive Date: 20080505
  Receipt Date: 20080425
  Transmission Date: 20081010
  Serious: Yes (Hospitalization)
  Sender: FDA-Public Use
  Company Number: US-MERCK-0804USA06483

PATIENT
  Age: 65 Year
  Sex: Female

DRUGS (3)
  1. HYDRODIURIL [Suspect]
     Route: 048
  2. ZOCOR [Suspect]
     Route: 048
  3. [THERAPY UNSPECIFIED] [Suspect]
     Indication: MAJOR DEPRESSION
     Route: 065

REACTIONS (11)
  - ABDOMINAL DISCOMFORT [None]
  - ANOREXIA [None]
  - BLUNTED AFFECT [None]
  - CONFUSIONAL STATE [None]
  - DRY MOUTH [None]
  - FATIGUE [None]
  - HEADACHE [None]
  - HYPONATRAEMIA [None]
  - MAJOR DEPRESSION [None]
  - MALAISE [None]
  - NAUSEA [None]
